FAERS Safety Report 9851663 (Version 2)
Quarter: 2014Q1

REPORT INFORMATION
  Report Type: Spontaneous
  Country: FR (occurrence: FR)
  Receive Date: 20140129
  Receipt Date: 20140207
  Transmission Date: 20141002
  Serious: Yes (Death)
  Sender: FDA-Public Use
  Company Number: FR-ROCHE-1339960

PATIENT
  Sex: Male

DRUGS (3)
  1. ZELBORAF [Suspect]
     Indication: NEOPLASM MALIGNANT
     Route: 048
     Dates: start: 201306, end: 201310
  2. HYDROCORTISONE [Concomitant]
     Route: 048
  3. CACIT D3 [Concomitant]

REACTIONS (2)
  - Death [Fatal]
  - Solar dermatitis [Unknown]
